FAERS Safety Report 6732287-4 (Version None)
Quarter: 2010Q2

REPORT INFORMATION
  Report Type: 
  Country: None (occurrence: None)
  Receive Date: 20100519
  Receipt Date: 20100514
  Transmission Date: 20101027
  Serious: Yes (Other)
  Sender: FDA-Public Use
  Company Number: B0653354A

PATIENT
  Sex: Female

DRUGS (11)
  1. LANOXIN [Suspect]
     Indication: DRUG USE FOR UNKNOWN INDICATION
     Dosage: .125MG PER DAY
     Route: 048
     Dates: start: 20090321, end: 20100321
  2. DILATREND [Suspect]
     Indication: DRUG USE FOR UNKNOWN INDICATION
     Dosage: 25MG PER DAY
     Route: 048
     Dates: start: 20090321, end: 20100321
  3. AMOXICILLIN [Concomitant]
     Route: 065
  4. LASIX [Concomitant]
     Dosage: 25MG PER DAY
     Route: 065
     Dates: start: 20090321, end: 20100321
  5. NOVORAPID [Concomitant]
     Dosage: 36IU PER DAY
     Route: 065
     Dates: start: 20090321, end: 20100321
  6. LEVEMIR [Concomitant]
     Dosage: 34IU PER DAY
     Route: 065
     Dates: start: 20090321, end: 20100321
  7. ZYLORIC [Concomitant]
     Dosage: 300MG PER DAY
     Route: 065
     Dates: start: 20090321, end: 20100321
  8. ALDACTONE [Concomitant]
     Dosage: 25MG PER DAY
     Route: 065
     Dates: start: 20090321, end: 20100321
  9. TRIATEC [Concomitant]
     Dosage: 5MG PER DAY
     Route: 065
     Dates: start: 20090321, end: 20100321
  10. MIRAPEX [Concomitant]
     Route: 065
  11. CYMBALTA [Concomitant]
     Route: 065

REACTIONS (3)
  - BRADYARRHYTHMIA [None]
  - CARDIOACTIVE DRUG LEVEL INCREASED [None]
  - PRESYNCOPE [None]
